FAERS Safety Report 7476826-7 (Version None)
Quarter: 2011Q2

REPORT INFORMATION
  Report Type: 
  Country: None (occurrence: None)
  Receive Date: 20110512
  Receipt Date: 20110502
  Transmission Date: 20111010
  Serious: Yes (Hospitalization)
  Sender: FDA-Public Use
  Company Number: US-BAXTER-2011BH010138

PATIENT

DRUGS (4)
  1. DIANEAL [Suspect]
     Route: 033
     Dates: start: 20110401
  2. DIANEAL [Suspect]
     Route: 033
     Dates: start: 20110401
  3. DIANEAL [Suspect]
     Indication: PERITONEAL DIALYSIS
     Route: 033
     Dates: end: 20101101
  4. DIANEAL [Suspect]
     Indication: PERITONEAL DIALYSIS
     Route: 033
     Dates: end: 20101101

REACTIONS (1)
  - DIABETIC COMPLICATION [None]
